FAERS Safety Report 14342998 (Version 1)
Quarter: 2017Q4

REPORT INFORMATION
  Report Type: Spontaneous
  Country: US (occurrence: US)
  Receive Date: 20171230
  Receipt Date: 20171230
  Transmission Date: 20180321
  Serious: Yes (Other)
  Sender: FDA-Public Use
  Company Number: None

PATIENT
  Age: 83 Year
  Sex: Male
  Weight: 67.5 kg

DRUGS (7)
  1. FINASTERIDE. [Concomitant]
     Active Substance: FINASTERIDE
  2. ASPIRIN. [Concomitant]
     Active Substance: ASPIRIN
  3. PROPRANOLOL [Concomitant]
     Active Substance: PROPRANOLOL HYDROCHLORIDE
  4. LEVOFLOXACIN. [Suspect]
     Active Substance: LEVOFLOXACIN
     Indication: PNEUMONIA
     Dosage: ?          QUANTITY:1 CAPSULE(S);?
     Route: 048
  5. HYDROCHLOROTHIAZIDE. [Concomitant]
     Active Substance: HYDROCHLOROTHIAZIDE
  6. ALDACTONE [Concomitant]
     Active Substance: SPIRONOLACTONE
  7. LOW DOSE MULTIVITAMINS [Concomitant]

REACTIONS (6)
  - Neuropathy peripheral [None]
  - Pain in extremity [None]
  - Discomfort [None]
  - Initial insomnia [None]
  - Loss of personal independence in daily activities [None]
  - Decreased interest [None]

NARRATIVE: CASE EVENT DATE: 20171205
